FAERS Safety Report 7032455-0 (Version None)
Quarter: 2010Q4

REPORT INFORMATION
  Report Type: 
  Country: None (occurrence: None)
  Receive Date: 20101007
  Receipt Date: 20100311
  Transmission Date: 20110411
  Serious: No
  Sender: FDA-Public Use
  Company Number: DE-BRISTOL-MYERS SQUIBB COMPANY-15017817

PATIENT

DRUGS (4)
  1. CETUXIMAB [Suspect]
     Indication: HEAD AND NECK CANCER
     Dosage: 5MG/ML
     Route: 042
  2. CISPLATIN [Suspect]
     Indication: HEAD AND NECK CANCER
     Route: 042
  3. CILENGITIDE [Suspect]
     Indication: HEAD AND NECK CANCER
     Route: 042
  4. FLUOROURACIL [Suspect]
     Indication: HEAD AND NECK CANCER
     Dosage: DAY 1 TO 4
     Route: 042

REACTIONS (1)
  - NEUTROPENIA [None]
